FAERS Safety Report 6694522-0 (Version None)
Quarter: 2010Q2

REPORT INFORMATION
  Report Type: 
  Country: None (occurrence: None)
  Receive Date: 20100420
  Receipt Date: 20100414
  Transmission Date: 20101027
  Serious: Yes (Other)
  Sender: FDA-Public Use
  Company Number: 2010SP015522

PATIENT
  Age: 53 Year
  Sex: Male
  Weight: 72 kg

DRUGS (8)
  1. PEG-INTRON [Suspect]
     Indication: HEPATITIS C
     Dosage: 100 MCG;QW;SC 50 MCG;QW;SC
     Route: 058
     Dates: start: 20070324, end: 20071024
  2. PEG-INTRON [Suspect]
     Indication: HEPATITIS C
     Dosage: 100 MCG;QW;SC 50 MCG;QW;SC
     Route: 058
     Dates: start: 20071101, end: 20071101
  3. REBETOL [Suspect]
     Indication: HEPATITIS C
     Dosage: 800 MG;QD;PO 600 MG;QD;PO 400 MG;QD;PO 600 MG;QD;PO
     Route: 048
     Dates: start: 20070322, end: 20070524
  4. REBETOL [Suspect]
     Indication: HEPATITIS C
     Dosage: 800 MG;QD;PO 600 MG;QD;PO 400 MG;QD;PO 600 MG;QD;PO
     Route: 048
     Dates: start: 20070525, end: 20070531
  5. REBETOL [Suspect]
     Indication: HEPATITIS C
     Dosage: 800 MG;QD;PO 600 MG;QD;PO 400 MG;QD;PO 600 MG;QD;PO
     Route: 048
     Dates: start: 20070601, end: 20070606
  6. REBETOL [Suspect]
     Indication: HEPATITIS C
     Dosage: 800 MG;QD;PO 600 MG;QD;PO 400 MG;QD;PO 600 MG;QD;PO
     Route: 048
     Dates: start: 20070607, end: 20071108
  7. ONON /01373701/ [Concomitant]
  8. MUCOSIL-10 [Concomitant]

REACTIONS (1)
  - BONE MARROW FAILURE [None]
